FAERS Safety Report 18081722 (Version 2)
Quarter: 2020Q3

REPORT INFORMATION
  Report Type: Spontaneous
  Country: US (occurrence: US)
  Receive Date: 20200728
  Receipt Date: 20200821
  Transmission Date: 20201103
  Serious: Yes (Death, Other)
  Sender: FDA-Public Use
  Company Number: US-GILEAD-2020-0486573

PATIENT
  Age: 86 Year
  Sex: Male
  Weight: 79.09 kg

DRUGS (23)
  1. REMDESIVIR. [Suspect]
     Active Substance: REMDESIVIR
     Indication: COVID-19 PNEUMONIA
     Dosage: 200 MG, ONCE
     Route: 042
     Dates: start: 20200721, end: 20200721
  2. ACETAMINOPHEN. [Concomitant]
     Active Substance: ACETAMINOPHEN
     Dosage: UNK
     Dates: start: 20200719, end: 20200720
  3. METHYLPREDNISOLONE. [Concomitant]
     Active Substance: METHYLPREDNISOLONE
     Indication: COVID-19
     Dosage: 80 MG
     Route: 042
     Dates: start: 20200720, end: 20200722
  4. THIAMIN [THIAMINE] [Concomitant]
     Active Substance: THIAMINE
     Dosage: 200 MG
     Route: 048
     Dates: start: 20200720, end: 20200721
  5. ENOXAPARIN [Concomitant]
     Active Substance: ENOXAPARIN
     Indication: THROMBOSIS PROPHYLAXIS
     Dosage: 60 MG
     Route: 058
     Dates: start: 20200720, end: 20200722
  6. ASPIRIN [ACETYLSALICYLIC ACID] [Concomitant]
     Active Substance: ASPIRIN
     Dosage: 81 MG
     Route: 048
     Dates: start: 20200719, end: 20200720
  7. FLUTICASONE. [Concomitant]
     Active Substance: FLUTICASONE
     Dosage: 100 MCG
     Route: 055
     Dates: start: 20200720, end: 20200721
  8. ZINC SULFATE. [Concomitant]
     Active Substance: ZINC SULFATE
     Dosage: 220 MG
     Route: 048
     Dates: start: 20200720, end: 20200721
  9. BUDESONIDE. [Concomitant]
     Active Substance: BUDESONIDE
     Dosage: 0.5 MG
     Route: 055
     Dates: start: 20200721, end: 20200722
  10. ATORVASTATIN [Concomitant]
     Active Substance: ATORVASTATIN
     Indication: HYPERLIPIDAEMIA
     Dosage: 80 MG
     Route: 048
     Dates: start: 20200719, end: 20200722
  11. VITAMIN D [COLECALCIFEROL] [Concomitant]
     Active Substance: CHOLECALCIFEROL
     Dosage: UNK
     Dates: start: 20200720, end: 20200721
  12. OMNIPAQUE [Concomitant]
     Active Substance: IOHEXOL
     Dosage: 100 ML
     Dates: start: 20200721, end: 20200721
  13. OXYGEN. [Concomitant]
     Active Substance: OXYGEN
  14. STROMECTOL [Concomitant]
     Active Substance: IVERMECTIN
     Indication: COVID-19
     Dosage: 16.5 MG
     Route: 048
     Dates: start: 20200721, end: 20200721
  15. CEFTRIAXONE. [Concomitant]
     Active Substance: CEFTRIAXONE
     Indication: PNEUMONIA
     Dosage: 1 G
     Route: 042
     Dates: start: 20200720, end: 20200722
  16. PLASMA [Concomitant]
     Active Substance: HUMAN PLASMA
  17. FAMOTIDINE. [Concomitant]
     Active Substance: FAMOTIDINE
     Dosage: 40 MG
     Route: 042
     Dates: start: 20200720, end: 20200722
  18. VANCOMYCIN [Concomitant]
     Active Substance: VANCOMYCIN
     Indication: PNEUMONIA
     Dosage: 1 G
     Route: 042
     Dates: start: 20200720, end: 20200721
  19. ASCORBIC ACID. [Concomitant]
     Active Substance: ASCORBIC ACID
     Dosage: 3000 MG
     Route: 042
     Dates: start: 20200720, end: 20200722
  20. AZITHROMYCIN ANHYDROUS. [Concomitant]
     Active Substance: AZITHROMYCIN ANHYDROUS
     Indication: PNEUMONIA
     Dosage: 500 MG
     Route: 042
     Dates: start: 20200720, end: 20200722
  21. MELATONIN [Concomitant]
     Active Substance: MELATONIN
     Dosage: 6 MG
     Route: 048
     Dates: start: 20200720, end: 20200722
  22. METHIMAZOLE. [Concomitant]
     Active Substance: METHIMAZOLE
     Indication: HYPOTHYROIDISM
     Dosage: 5 MG
     Route: 048
     Dates: start: 20200719, end: 20200722
  23. ACETYLCYSTEINE. [Concomitant]
     Active Substance: ACETYLCYSTEINE
     Indication: COVID-19
     Dosage: 600 MG
     Route: 048
     Dates: start: 20200720, end: 20200722

REACTIONS (11)
  - COVID-19 [Fatal]
  - White blood cell count increased [Not Recovered/Not Resolved]
  - Alanine aminotransferase increased [Not Recovered/Not Resolved]
  - Procalcitonin increased [Not Recovered/Not Resolved]
  - Aspartate aminotransferase increased [Not Recovered/Not Resolved]
  - Respiratory disorder [Fatal]
  - Oxygen saturation decreased [Fatal]
  - Inflammatory marker increased [Fatal]
  - Superinfection bacterial [Fatal]
  - Agitation [Not Recovered/Not Resolved]
  - Blood creatinine increased [Not Recovered/Not Resolved]

NARRATIVE: CASE EVENT DATE: 2020
